FAERS Safety Report 6565172-1 (Version None)
Quarter: 2010Q1

REPORT INFORMATION
  Report Type: 
  Country: None (occurrence: None)
  Receive Date: 20100201
  Receipt Date: 20100125
  Transmission Date: 20100710
  Serious: Yes (Other)
  Sender: FDA-Public Use
  Company Number: B0629413A

PATIENT
  Age: 16 Year
  Sex: Male

DRUGS (3)
  1. RELENZA [Suspect]
     Indication: DRUG USE FOR UNKNOWN INDICATION
     Route: 055
     Dates: start: 20100119, end: 20100119
  2. CALONAL [Concomitant]
     Route: 065
     Dates: start: 20100118
  3. CELESTAMINE TAB [Concomitant]
     Route: 048
     Dates: start: 20100119

REACTIONS (2)
  - LIVER FUNCTION TEST ABNORMAL [None]
  - URTICARIA [None]
